FAERS Safety Report 13899220 (Version 2)
Quarter: 2017Q3

REPORT INFORMATION
  Report Type: Report from Study
  Country: US (occurrence: US)
  Receive Date: 20170824
  Receipt Date: 20170926
  Transmission Date: 20171127
  Serious: Yes (Hospitalization)
  Sender: FDA-Public Use
  Company Number: US-SHIRE-US201718138

PATIENT

DRUGS (18)
  1. RUXOLITINIB [Suspect]
     Active Substance: RUXOLITINIB
     Dosage: 30 MG/M2, UNK
     Route: 048
     Dates: start: 20170313
  2. CYCLOPHOSPHAMIDE. [Suspect]
     Active Substance: CYCLOPHOSPHAMIDE
     Indication: ACUTE LYMPHOCYTIC LEUKAEMIA
     Dosage: 1000 MG/M2, UNK
     Route: 042
     Dates: start: 20170130, end: 20170228
  3. CYTARABINE. [Suspect]
     Active Substance: CYTARABINE
     Dosage: 164 MG, UNK
     Route: 042
     Dates: start: 20170307, end: 20170310
  4. PEGASPARGASE [Suspect]
     Active Substance: PEGASPARGASE
     Indication: ACUTE LYMPHOCYTIC LEUKAEMIA
     Dosage: UNK
     Route: 042
     Dates: start: 20170314, end: 20170314
  5. RUXOLITINIB [Suspect]
     Active Substance: RUXOLITINIB
     Dosage: 30 MG/M2, UNK
     Route: 048
     Dates: start: 20170228
  6. VINCRISTINE [Suspect]
     Active Substance: VINCRISTINE
     Dosage: 1.5 MG/M2, UNK
     Dates: start: 20170314, end: 20170314
  7. CYTARABINE. [Suspect]
     Active Substance: CYTARABINE
     Dosage: 164 MG, UNK
     Route: 042
     Dates: start: 20170130, end: 20170202
  8. MERCAPTOPURINE. [Suspect]
     Active Substance: MERCAPTOPURINE
     Dosage: 125 MG MON-FRI AND 150 MG SAT-SUN
     Route: 048
     Dates: start: 20170130, end: 20170212
  9. METHOTREXATE. [Suspect]
     Active Substance: METHOTREXATE
     Indication: ACUTE LYMPHOCYTIC LEUKAEMIA
     Dosage: 15 MG, UNK
     Route: 037
     Dates: start: 20170213
  10. CYTARABINE. [Suspect]
     Active Substance: CYTARABINE
     Dosage: 164 MG, UNK
     Route: 042
     Dates: start: 20170206, end: 20170209
  11. MERCAPTOPURINE. [Suspect]
     Active Substance: MERCAPTOPURINE
     Dosage: 125 MG MON-FRI AND 150 MG SAT-SUN
     Route: 048
     Dates: start: 20170228, end: 20170313
  12. RUXOLITINIB [Suspect]
     Active Substance: RUXOLITINIB
     Indication: ACUTE LYMPHOCYTIC LEUKAEMIA
     Dosage: UNK
     Route: 048
     Dates: start: 20170212
  13. RUXOLITINIB [Suspect]
     Active Substance: RUXOLITINIB
     Dosage: 30 MG/M2, UNK
     Route: 048
     Dates: start: 20170130
  14. VINCRISTINE [Suspect]
     Active Substance: VINCRISTINE
     Indication: ACUTE LYMPHOCYTIC LEUKAEMIA
     Dosage: UNK
     Route: 042
     Dates: start: 20170213
  15. CYTARABINE. [Suspect]
     Active Substance: CYTARABINE
     Dosage: 164 MG, UNK
     Route: 042
     Dates: start: 20170228, end: 20170303
  16. CYCLOPHOSPHAMIDE. [Suspect]
     Active Substance: CYCLOPHOSPHAMIDE
     Dosage: 2180 MG, UNK
     Route: 042
     Dates: start: 20170130, end: 20170228
  17. CYTARABINE. [Suspect]
     Active Substance: CYTARABINE
     Indication: ACUTE LYMPHOCYTIC LEUKAEMIA
     Dosage: 75 MG/M2, UNK
     Route: 042
     Dates: start: 20170130, end: 20170307
  18. MERCAPTOPURINE. [Suspect]
     Active Substance: MERCAPTOPURINE
     Indication: ACUTE LYMPHOCYTIC LEUKAEMIA
     Dosage: 60 MG, UNK
     Route: 048
     Dates: start: 20170130, end: 20170313

REACTIONS (3)
  - Headache [Recovered/Resolved]
  - Headache [Recovered/Resolved]
  - Pyrexia [Recovered/Resolved]

NARRATIVE: CASE EVENT DATE: 20170214
